FAERS Safety Report 15584208 (Version 2)
Quarter: 2018Q4

REPORT INFORMATION
  Report Type: Report from Study
  Country: CA (occurrence: CA)
  Receive Date: 20181104
  Receipt Date: 20181105
  Transmission Date: 20190205
  Serious: Yes (Other)
  Sender: FDA-Public Use
  Company Number: PHHY2018CA038443

PATIENT
  Age: 68 Year
  Sex: Female

DRUGS (6)
  1. SANDOSTATIN LAR DEPOT [Suspect]
     Active Substance: OCTREOTIDE ACETATE
     Dosage: 30 MG, QMO (EVERY 4 WEEKS)
     Route: 030
     Dates: start: 20180815
  2. ZOPICLONE [Suspect]
     Active Substance: ZOPICLONE
     Indication: PRODUCT USED FOR UNKNOWN INDICATION
     Route: 065
  3. SANDOSTATIN LAR DEPOT [Suspect]
     Active Substance: OCTREOTIDE ACETATE
     Indication: CARCINOID TUMOUR
     Dosage: 20 MG, QMO
     Route: 030
     Dates: start: 20180309
  4. CODEINE PHOSPHATE [Suspect]
     Active Substance: CODEINE PHOSPHATE
     Indication: PRODUCT USED FOR UNKNOWN INDICATION
     Route: 065
  5. MORPHINE [Suspect]
     Active Substance: MORPHINE
     Indication: PRODUCT USED FOR UNKNOWN INDICATION
     Route: 065
  6. SANDOSTATIN [Suspect]
     Active Substance: OCTREOTIDE ACETATE
     Indication: CARCINOID TUMOUR
     Dosage: 500 UG, TID
     Route: 058
     Dates: start: 20180208

REACTIONS (12)
  - Headache [Recovered/Resolved]
  - Diarrhoea [Recovering/Resolving]
  - Injection site pain [Unknown]
  - Nausea [Unknown]
  - Dizziness [Recovered/Resolved]
  - Heart rate decreased [Unknown]
  - Injection site mass [Unknown]
  - Throat irritation [Recovered/Resolved]
  - Abdominal pain [Unknown]
  - Swelling [Unknown]
  - Malignant neoplasm progression [Unknown]
  - Hypotension [Unknown]

NARRATIVE: CASE EVENT DATE: 2018
